FAERS Safety Report 16879519 (Version 1)
Quarter: 2019Q4

REPORT INFORMATION
  Report Type: Spontaneous
  Country: US (occurrence: US)
  Receive Date: 20191003
  Receipt Date: 20191003
  Transmission Date: 20200122
  Serious: Yes (Hospitalization)
  Sender: FDA-Public Use
  Company Number: US-CURIUM-200800319

PATIENT
  Age: 60 Year
  Sex: Male

DRUGS (3)
  1. ULTRA-TECHNEKOW DTE [Suspect]
     Active Substance: TECHNETIUM TC-99M SODIUM PERTECHNETATE
     Indication: RADIOISOTOPE SCAN
     Dosage: 29 MCI, SINGLE??NUMBER OF SEPARATE DOSAGES: 1
     Route: 042
     Dates: start: 20080123, end: 20080123
  2. CHEMOTHERAPEUTICS NOS [Suspect]
     Active Substance: UNSPECIFIED INGREDIENT
     Indication: NON-HODGKIN^S LYMPHOMA
     Dosage: UNK, UNK
     Dates: start: 20080124, end: 20080124
  3. TECHNESCAN PYP [Suspect]
     Active Substance: TECHNETIUM TC-99M PYROPHOSPHATE
     Indication: RADIOISOTOPE SCAN
     Dosage: 3 ML, SINGLE??NUMBER OF SEPARATE DOSAGES: 1
     Route: 042
     Dates: start: 20080123, end: 20080123

REACTIONS (2)
  - Septic shock [Unknown]
  - Radioisotope scan abnormal [Recovered/Resolved]

NARRATIVE: CASE EVENT DATE: 20080123
